FAERS Safety Report 18569035 (Version 6)
Quarter: 2022Q1

REPORT INFORMATION
  Report Type: Spontaneous
  Country: US (occurrence: US)
  Receive Date: 20201202
  Receipt Date: 20220307
  Transmission Date: 20220423
  Serious: No
  Sender: FDA-Public Use
  Company Number: US-PFIZER INC-2020468596

PATIENT
  Age: 15 Year
  Sex: Male

DRUGS (3)
  1. GENOTROPIN [Suspect]
     Active Substance: SOMATROPIN
     Dosage: 2 MG
     Dates: start: 2019
  2. GENOTROPIN [Suspect]
     Active Substance: SOMATROPIN
     Dosage: 12 MG
  3. GENOTROPIN [Suspect]
     Active Substance: SOMATROPIN
     Dosage: 12 MG

REACTIONS (3)
  - Device issue [Unknown]
  - Device leakage [Unknown]
  - Drug dose omission by device [Unknown]
